FAERS Safety Report 7633896-0 (Version None)
Quarter: 2011Q3

REPORT INFORMATION
  Report Type: 
  Country: None (occurrence: None)
  Receive Date: 20110725
  Receipt Date: 20110721
  Transmission Date: 20111222
  Serious: Yes (Life-Threatening, Hospitalization, Disabling, Other)
  Sender: FDA-Public Use
  Company Number: US-B.I. PHARMACEUTICALS,INC./RIDGEFIELD-2011-BP-17003BP

PATIENT
  Age: 90 Year
  Sex: Female
  Weight: 63.5 kg

DRUGS (2)
  1. MULTIPLE CONCOMITANT MEDICATIONS [Concomitant]
  2. PRADAXA [Suspect]
     Indication: ATRIAL FIBRILLATION
     Dosage: 300 MG
     Route: 048
     Dates: start: 20110510, end: 20110703

REACTIONS (5)
  - RESPIRATORY FAILURE [None]
  - SUBARACHNOID HAEMORRHAGE [None]
  - RENAL FAILURE [None]
  - PNEUMONIA ASPIRATION [None]
  - FALL [None]
